FAERS Safety Report 23645064 (Version 1)
Quarter: 2024Q1

REPORT INFORMATION
  Report Type: Spontaneous
  Country: US (occurrence: US)
  Receive Date: 20240318
  Receipt Date: 20240318
  Transmission Date: 20240409
  Serious: No
  Sender: FDA-Public Use
  Company Number: US-SMITH AND NEPHEW, INC-2023SMT00066

PATIENT
  Sex: Female
  Weight: 125.62 kg

DRUGS (6)
  1. COLLAGENASE SANTYL [Suspect]
     Active Substance: COLLAGENASE CLOSTRIDIUM HISTOLYTICUM
     Indication: Diabetic foot
     Dosage: UNK, 1X/DAY
     Route: 061
     Dates: start: 202307, end: 2023
  2. GLIPIZIDE [Concomitant]
     Active Substance: GLIPIZIDE
     Dosage: UNK
  3. INSULIN NOS [Concomitant]
     Active Substance: INSULIN NOS
  4. CALCIUM [Concomitant]
     Active Substance: CALCIUM
     Dosage: UNK
  5. UNSPECIFIED INGREDIENT [Concomitant]
     Active Substance: UNSPECIFIED INGREDIENT
     Dosage: UNK
  6. UNSPECIFIED INGREDIENT [Concomitant]
     Active Substance: UNSPECIFIED INGREDIENT
     Dosage: UNK

REACTIONS (5)
  - Skin burning sensation [Recovered/Resolved]
  - Impaired healing [Recovering/Resolving]
  - Drug ineffective [Recovered/Resolved]
  - Wound complication [Recovering/Resolving]
  - Product quality issue [Recovered/Resolved]

NARRATIVE: CASE EVENT DATE: 20230101
